FAERS Safety Report 7729534-9 (Version None)
Quarter: 2011Q3

REPORT INFORMATION
  Report Type: 
  Country: None (occurrence: None)
  Receive Date: 20110906
  Receipt Date: 20110830
  Transmission Date: 20111222
  Serious: Yes (Other)
  Sender: FDA-Public Use
  Company Number: US-ALLERGAN-1111633US

PATIENT
  Age: 55 Year
  Sex: Female

DRUGS (1)
  1. REFRESH PLUS [Suspect]
     Indication: DRY EYE
     Dosage: 4 GTT, BID
     Route: 047
     Dates: start: 20101001

REACTIONS (5)
  - VISUAL ACUITY REDUCED [None]
  - VISUAL IMPAIRMENT [None]
  - VISION BLURRED [None]
  - ACTIVITIES OF DAILY LIVING IMPAIRED [None]
  - PHOTOPHOBIA [None]
